FAERS Safety Report 4954046-5 (Version None)
Quarter: 2006Q1

REPORT INFORMATION
  Report Type: 
  Country: None (occurrence: None)
  Receive Date: 20060321
  Receipt Date: 20060215
  Transmission Date: 20060701
  Serious: Yes (Hospitalization)
  Sender: FDA-Public Use
  Company Number: FRPFM-S-20060053 - V001

PATIENT
  Sex: Male

DRUGS (1)
  1. NAVELBINE [Suspect]
     Dosage: EVERY DAY
     Route: 042

REACTIONS (1)
  - PERIPHERAL ISCHAEMIA [None]
